FAERS Safety Report 14434212 (Version 1)
Quarter: 2018Q1

REPORT INFORMATION
  Report Type: Report from Study
  Country: MX (occurrence: MX)
  Receive Date: 20180124
  Receipt Date: 20180124
  Transmission Date: 20180509
  Serious: Yes (Death, Hospitalization)
  Sender: FDA-Public Use
  Company Number: MX-CELGENEUS-MEX-20180107434

PATIENT
  Age: 77 Year
  Sex: Male

DRUGS (2)
  1. VIDAZA [Suspect]
     Active Substance: AZACITIDINE
     Indication: ACUTE MYELOID LEUKAEMIA
  2. VIDAZA [Suspect]
     Active Substance: AZACITIDINE
     Indication: MYELODYSPLASTIC SYNDROME
     Dosage: 140 MILLIGRAM
     Route: 058
     Dates: start: 20160909, end: 20171205

REACTIONS (2)
  - Death [Fatal]
  - Influenza [Unknown]

NARRATIVE: CASE EVENT DATE: 20180118
